FAERS Safety Report 6464695-3 (Version None)
Quarter: 2009Q4

REPORT INFORMATION
  Report Type: 
  Country: None (occurrence: None)
  Receive Date: 20091118
  Receipt Date: 20090527
  Transmission Date: 20100525
  Serious: Yes (Hospitalization)
  Sender: FDA-Public Use
  Company Number: 2009BI012242

PATIENT
  Age: 34 Year
  Sex: Female
  Weight: 101.1521 kg

DRUGS (6)
  1. TYSABRI [Suspect]
     Indication: MULTIPLE SCLEROSIS
     Dosage: 300 MG; QM; IV
     Route: 042
     Dates: start: 20081119
  2. NEURONTIN [Concomitant]
  3. ZANAFLEX [Concomitant]
  4. CYMBALTA [Concomitant]
  5. PERCOCET [Concomitant]
  6. VIVELLE-DOT [Concomitant]

REACTIONS (2)
  - ARTHRALGIA [None]
  - MULTIPLE SCLEROSIS RELAPSE [None]
